FAERS Safety Report 23077677 (Version 1)
Quarter: 2023Q4

REPORT INFORMATION
  Report Type: Spontaneous
  Country: US (occurrence: US)
  Receive Date: 20231018
  Receipt Date: 20231018
  Transmission Date: 20240110
  Serious: Yes (Hospitalization, Other)
  Sender: FDA-Public Use
  Company Number: US-SANDOZ-SDZ2023US005492

PATIENT
  Sex: Female

DRUGS (2)
  1. CARVEDILOL [Suspect]
     Active Substance: CARVEDILOL
     Indication: Product used for unknown indication
     Dosage: UNK
     Route: 065
  2. ENTRESTO [Suspect]
     Active Substance: SACUBITRIL\VALSARTAN
     Indication: Product used for unknown indication
     Dosage: UNK
     Route: 048

REACTIONS (8)
  - Product dose omission issue [Unknown]
  - Rheumatoid arthritis [Unknown]
  - Oedema [Unknown]
  - Loss of employment [Unknown]
  - Dysphonia [Unknown]
  - Memory impairment [Unknown]
  - Cardiac resynchronisation therapy [Recovering/Resolving]
  - Drug ineffective [Unknown]
